FAERS Safety Report 25888016 (Version 1)
Quarter: 2025Q4

REPORT INFORMATION
  Report Type: Spontaneous
  Country: EU (occurrence: EU)
  Receive Date: 20251007
  Receipt Date: 20251007
  Transmission Date: 20260118
  Serious: Yes (Other)
  Sender: AMGEN
  Company Number: EU-AMGEN-ROUSP2025195558

PATIENT
  Age: 66 Year
  Sex: Male

DRUGS (4)
  1. VECTIBIX [Suspect]
     Active Substance: PANITUMUMAB
     Indication: Colorectal cancer metastatic
     Dosage: 6 MILLIGRAM/KILOGRAM
     Route: 040
     Dates: start: 20240729
  2. LEUCOVORIN [Suspect]
     Active Substance: LEUCOVORIN\LEUCOVORIN CALCIUM
     Indication: Colorectal cancer metastatic
     Dosage: UNK
     Route: 065
     Dates: start: 20240819
  3. FLUOROURACIL [Suspect]
     Active Substance: FLUOROURACIL
     Indication: Colorectal cancer metastatic
     Dosage: UNK
     Route: 065
     Dates: start: 20240819
  4. OXALIPLATIN [Suspect]
     Active Substance: OXALIPLATIN
     Indication: Colorectal cancer metastatic
     Dosage: 130 MILLIGRAM/SQ. METER
     Route: 065
     Dates: start: 20240729

REACTIONS (3)
  - Neuropathy peripheral [Not Recovered/Not Resolved]
  - Hepatic lesion [Unknown]
  - Skin toxicity [Not Recovered/Not Resolved]

NARRATIVE: CASE EVENT DATE: 20250306
